FAERS Safety Report 7801177-8 (Version None)
Quarter: 2011Q4

REPORT INFORMATION
  Report Type: 
  Country: None (occurrence: None)
  Receive Date: 20111007
  Receipt Date: 20110929
  Transmission Date: 20120403
  Serious: No
  Sender: FDA-Public Use
  Company Number: US-BIOGENIDEC-2011BI037663

PATIENT
  Age: 56 Year
  Sex: Female

DRUGS (1)
  1. TYSABRI [Suspect]
     Indication: MULTIPLE SCLEROSIS
     Route: 042
     Dates: start: 20090601

REACTIONS (6)
  - FATIGUE [None]
  - COORDINATION ABNORMAL [None]
  - DIPLOPIA [None]
  - MUSCLE SPASMS [None]
  - PARAESTHESIA [None]
  - MULTIPLE SCLEROSIS [None]
